FAERS Safety Report 5683056-8 (Version None)
Quarter: 2008Q1

REPORT INFORMATION
  Report Type: 
  Country: None (occurrence: None)
  Receive Date: 20080327
  Receipt Date: 20080319
  Transmission Date: 20080703
  Serious: Yes (Hospitalization, Other)
  Sender: FDA-Public Use
  Company Number: PHHY2008JP01376

PATIENT
  Age: 62 Year
  Sex: Female

DRUGS (10)
  1. DECADRON [Suspect]
     Indication: PROPHYLAXIS
     Dosage: UNK, QD
     Route: 042
     Dates: start: 20061129, end: 20070226
  2. TAXOL [Concomitant]
     Indication: BREAST CANCER
     Dosage: 90 MG
     Route: 042
     Dates: start: 20061129, end: 20070226
  3. NAVELBINE [Concomitant]
     Indication: BREAST CANCER
     Dosage: 35 MG
     Route: 042
     Dates: start: 20070312, end: 20070910
  4. AROMASIN [Concomitant]
     Dosage: 25 MG
     Route: 048
     Dates: start: 20070709
  5. XELODA [Concomitant]
     Indication: BREAST CANCER
     Dosage: 300 MG
     Route: 048
     Dates: start: 20071001
  6. CEFZON [Concomitant]
  7. FLOMOX [Concomitant]
     Indication: GRANULOMA
     Dates: start: 20071213
  8. SAWACILLIN [Concomitant]
     Dates: start: 20080205
  9. SAWACILLIN [Concomitant]
     Dates: start: 20080214
  10. ZOMETA [Suspect]
     Indication: METASTASES TO BONE
     Dosage: UNK, QD
     Route: 042
     Dates: start: 20061218, end: 20071126

REACTIONS (13)
  - ABSCESS DRAINAGE [None]
  - ABSCESS MANAGEMENT [None]
  - BONE DISORDER [None]
  - GINGIVAL ABSCESS [None]
  - GINGIVAL DISORDER [None]
  - HYPERBARIC OXYGEN THERAPY [None]
  - MUCOSAL INFLAMMATION [None]
  - OEDEMA MUCOSAL [None]
  - OSTEITIS DEFORMANS [None]
  - OSTEOMYELITIS [None]
  - OSTEONECROSIS [None]
  - TOOTH ABSCESS [None]
  - TOOTH EXTRACTION [None]
